FAERS Safety Report 13119682 (Version 1)
Quarter: 2017Q1

REPORT INFORMATION
  Report Type: Spontaneous
  Country: US (occurrence: US)
  Receive Date: 20170117
  Receipt Date: 20170117
  Transmission Date: 20170428
  Serious: No
  Sender: FDA-Public Use
  Company Number: US-TEVA-726195ACC

PATIENT
  Age: 66 Year
  Sex: Female

DRUGS (7)
  1. ROPINIROLE. [Concomitant]
     Active Substance: ROPINIROLE
  2. MULTIVITAMIN [Concomitant]
     Active Substance: VITAMINS
  3. SIMVASTATIN. [Concomitant]
     Active Substance: SIMVASTATIN
  4. VITAMIN D [Concomitant]
     Active Substance: CHOLECALCIFEROL
  5. CITALOPRAM [Concomitant]
     Active Substance: CITALOPRAM HYDROBROMIDE
  6. OXCARBAZEPINE. [Concomitant]
     Active Substance: OXCARBAZEPINE
  7. COPAXONE [Suspect]
     Active Substance: GLATIRAMER ACETATE
     Indication: MULTIPLE SCLEROSIS
     Route: 058
     Dates: start: 20130412

REACTIONS (1)
  - Dizziness [Unknown]

NARRATIVE: CASE EVENT DATE: 201610
